FAERS Safety Report 17699218 (Version 1)
Quarter: 2020Q2

REPORT INFORMATION
  Report Type: Report from Study
  Country: IN (occurrence: IN)
  Receive Date: 20200423
  Receipt Date: 20200423
  Transmission Date: 20200714
  Serious: Yes (Other)
  Sender: FDA-Public Use
  Company Number: NVSC2020IN095847

PATIENT
  Age: 35 Year
  Sex: Male
  Weight: 86 kg

DRUGS (2)
  1. GALVUS MET [Suspect]
     Active Substance: METFORMIN HYDROCHLORIDE\VILDAGLIPTIN
     Dosage: 1 DF (METFORMIN 500/ VILDAGLIPTIN 50 ), BID (0-1-1) SINCE 3 MONTHS
     Route: 048
  2. GALVUS MET [Suspect]
     Active Substance: METFORMIN HYDROCHLORIDE\VILDAGLIPTIN
     Indication: DIABETES MELLITUS
     Dosage: 1000 METFORMIN/ 50 VILDAGLIPTIN
     Route: 048
     Dates: start: 2016, end: 2018

REACTIONS (4)
  - Insomnia [Unknown]
  - Inappropriate schedule of product administration [Unknown]
  - Depression [Unknown]
  - Glycosylated haemoglobin increased [Unknown]

NARRATIVE: CASE EVENT DATE: 201811
